FAERS Safety Report 19501719 (Version 1)
Quarter: 2021Q3

REPORT INFORMATION
  Report Type: Spontaneous
  Country: US (occurrence: US)
  Receive Date: 20210706
  Receipt Date: 20210706
  Transmission Date: 20211014
  Serious: No
  Sender: FDA-Public Use
  Company Number: None

PATIENT
  Age: 67 Year
  Sex: Female

DRUGS (1)
  1. AMBRISENTAN 5MG CIPLA USA [Suspect]
     Active Substance: AMBRISENTAN
     Indication: PULMONARY ARTERIAL HYPERTENSION
     Route: 048
     Dates: start: 20210623

REACTIONS (7)
  - Vomiting [None]
  - Swelling [None]
  - Decreased appetite [None]
  - Nausea [None]
  - Hallucination [None]
  - Oesophageal stenosis [None]
  - Confusional state [None]

NARRATIVE: CASE EVENT DATE: 202106
